FAERS Safety Report 15811086 (Version 2)
Quarter: 2025Q3

REPORT INFORMATION
  Report Type: Spontaneous
  Country: GB (occurrence: GB)
  Receive Date: 20190111
  Receipt Date: 20250724
  Transmission Date: 20251021
  Serious: Yes (Hospitalization)
  Sender: AUROBINDO
  Company Number: GB-AUROBINDO-AUR-APL-2019-000037

PATIENT
  Age: 48 Year
  Sex: Male

DRUGS (1)
  1. RISPERIDONE [Suspect]
     Active Substance: RISPERIDONE
     Indication: Hallucination, visual
     Route: 065

REACTIONS (2)
  - Condition aggravated [Recovering/Resolving]
  - Illusion [Recovering/Resolving]
